FAERS Safety Report 20654791 (Version 2)
Quarter: 2025Q4

REPORT INFORMATION
  Report Type: Spontaneous
  Country: EU (occurrence: EU)
  Receive Date: 20220330
  Receipt Date: 20251017
  Transmission Date: 20260118
  Serious: Yes (Other)
  Sender: MYLAN
  Company Number: None

PATIENT
  Age: 63 Year
  Sex: Female
  Weight: 129 kg

DRUGS (36)
  1. PREGABALIN [Suspect]
     Active Substance: PREGABALIN
     Indication: Product used for unknown indication
     Dosage: 100 MILLIGRAM, QD
     Dates: end: 20220202
  2. PREGABALIN [Suspect]
     Active Substance: PREGABALIN
     Dosage: 100 MILLIGRAM, QD
     Route: 048
     Dates: end: 20220202
  3. PREGABALIN [Suspect]
     Active Substance: PREGABALIN
     Dosage: 100 MILLIGRAM, QD
     Route: 048
     Dates: end: 20220202
  4. PREGABALIN [Suspect]
     Active Substance: PREGABALIN
     Dosage: 100 MILLIGRAM, QD
     Dates: end: 20220202
  5. SUFENTANIL [Suspect]
     Active Substance: SUFENTANIL
     Indication: Anaesthesia
     Dosage: UNK UNK, TOTAL (SINGLE)
     Dates: start: 20220131, end: 20220131
  6. SUFENTANIL [Suspect]
     Active Substance: SUFENTANIL
     Dosage: UNK UNK, TOTAL (SINGLE)
     Route: 042
     Dates: start: 20220131, end: 20220131
  7. SUFENTANIL [Suspect]
     Active Substance: SUFENTANIL
     Dosage: UNK UNK, TOTAL (SINGLE)
     Route: 042
     Dates: start: 20220131, end: 20220131
  8. SUFENTANIL [Suspect]
     Active Substance: SUFENTANIL
     Dosage: UNK UNK, TOTAL (SINGLE)
     Dates: start: 20220131, end: 20220131
  9. CEFTRIAXONE SODIUM [Suspect]
     Active Substance: CEFTRIAXONE SODIUM
     Indication: Prophylaxis
     Dosage: 1 GRAM, TOTAL
     Dates: start: 20220126, end: 20220201
  10. CEFTRIAXONE SODIUM [Suspect]
     Active Substance: CEFTRIAXONE SODIUM
     Dosage: 1 GRAM, TOTAL
     Route: 042
     Dates: start: 20220126, end: 20220201
  11. CEFTRIAXONE SODIUM [Suspect]
     Active Substance: CEFTRIAXONE SODIUM
     Dosage: 1 GRAM, TOTAL
     Route: 042
     Dates: start: 20220126, end: 20220201
  12. CEFTRIAXONE SODIUM [Suspect]
     Active Substance: CEFTRIAXONE SODIUM
     Dosage: 1 GRAM, TOTAL
     Dates: start: 20220126, end: 20220201
  13. EPHEDRINE [Suspect]
     Active Substance: EPHEDRINE
     Indication: Product used for unknown indication
     Dosage: UNK UNK, TOTAL (SINGLE)
     Dates: start: 20220131, end: 20220131
  14. EPHEDRINE [Suspect]
     Active Substance: EPHEDRINE
     Dosage: UNK UNK, TOTAL (SINGLE)
     Route: 042
     Dates: start: 20220131, end: 20220131
  15. EPHEDRINE [Suspect]
     Active Substance: EPHEDRINE
     Dosage: UNK UNK, TOTAL (SINGLE)
     Route: 042
     Dates: start: 20220131, end: 20220131
  16. EPHEDRINE [Suspect]
     Active Substance: EPHEDRINE
     Dosage: UNK UNK, TOTAL (SINGLE)
     Dates: start: 20220131, end: 20220131
  17. METRONIDAZOLE [Suspect]
     Active Substance: METRONIDAZOLE
     Indication: Prophylaxis
     Dosage: 500 MILLIGRAM, Q8H (EVERY 8 HOURS)
     Dates: start: 20220126, end: 20220201
  18. METRONIDAZOLE [Suspect]
     Active Substance: METRONIDAZOLE
     Dosage: 500 MILLIGRAM, Q8H (EVERY 8 HOURS)
     Route: 042
     Dates: start: 20220126, end: 20220201
  19. METRONIDAZOLE [Suspect]
     Active Substance: METRONIDAZOLE
     Dosage: 500 MILLIGRAM, Q8H (EVERY 8 HOURS)
     Route: 042
     Dates: start: 20220126, end: 20220201
  20. METRONIDAZOLE [Suspect]
     Active Substance: METRONIDAZOLE
     Dosage: 500 MILLIGRAM, Q8H (EVERY 8 HOURS)
     Dates: start: 20220126, end: 20220201
  21. PROPOFOL LIPURO [Suspect]
     Active Substance: PROPOFOL
     Indication: Anaesthesia
     Dosage: UNK UNK, TOTAL (SINGLE)
     Dates: start: 20220131, end: 20220131
  22. PROPOFOL LIPURO [Suspect]
     Active Substance: PROPOFOL
     Dosage: UNK UNK, TOTAL (SINGLE)
     Route: 042
     Dates: start: 20220131, end: 20220131
  23. PROPOFOL LIPURO [Suspect]
     Active Substance: PROPOFOL
     Dosage: UNK UNK, TOTAL (SINGLE)
     Route: 042
     Dates: start: 20220131, end: 20220131
  24. PROPOFOL LIPURO [Suspect]
     Active Substance: PROPOFOL
     Dosage: UNK UNK, TOTAL (SINGLE)
     Dates: start: 20220131, end: 20220131
  25. SUCCINYLCHOLINE [Suspect]
     Active Substance: SUCCINYLCHOLINE
     Indication: Anaesthesia
     Dosage: UNK UNK, TOTAL (SINGLE)
     Dates: start: 20220131, end: 20220131
  26. SUCCINYLCHOLINE [Suspect]
     Active Substance: SUCCINYLCHOLINE
     Dosage: UNK UNK, TOTAL (SINGLE)
     Route: 042
     Dates: start: 20220131, end: 20220131
  27. SUCCINYLCHOLINE [Suspect]
     Active Substance: SUCCINYLCHOLINE
     Dosage: UNK UNK, TOTAL (SINGLE)
     Route: 042
     Dates: start: 20220131, end: 20220131
  28. SUCCINYLCHOLINE [Suspect]
     Active Substance: SUCCINYLCHOLINE
     Dosage: UNK UNK, TOTAL (SINGLE)
     Dates: start: 20220131, end: 20220131
  29. IOMERON [Suspect]
     Active Substance: IOMEPROL
     Indication: Endoscopic retrograde cholangiopancreatography
     Dosage: 10 MILLILITER, TOTAL
     Dates: start: 20220131, end: 20220131
  30. IOMERON [Suspect]
     Active Substance: IOMEPROL
     Dosage: 10 MILLILITER, TOTAL
     Route: 065
     Dates: start: 20220131, end: 20220131
  31. IOMERON [Suspect]
     Active Substance: IOMEPROL
     Dosage: 10 MILLILITER, TOTAL
     Route: 065
     Dates: start: 20220131, end: 20220131
  32. IOMERON [Suspect]
     Active Substance: IOMEPROL
     Dosage: 10 MILLILITER, TOTAL
     Dates: start: 20220131, end: 20220131
  33. IOBITRIDOL [Suspect]
     Active Substance: IOBITRIDOL
     Indication: Computerised tomogram
     Dosage: 140 MILLILITER, TOTAL, (XENETIX 350 (350 MG IODINE/ML))
     Dates: start: 20220125, end: 20220125
  34. IOBITRIDOL [Suspect]
     Active Substance: IOBITRIDOL
     Dosage: 140 MILLILITER, TOTAL, (XENETIX 350 (350 MG IODINE/ML))
     Route: 042
     Dates: start: 20220125, end: 20220125
  35. IOBITRIDOL [Suspect]
     Active Substance: IOBITRIDOL
     Dosage: 140 MILLILITER, TOTAL, (XENETIX 350 (350 MG IODINE/ML))
     Route: 042
     Dates: start: 20220125, end: 20220125
  36. IOBITRIDOL [Suspect]
     Active Substance: IOBITRIDOL
     Dosage: 140 MILLILITER, TOTAL, (XENETIX 350 (350 MG IODINE/ML))
     Dates: start: 20220125, end: 20220125

REACTIONS (4)
  - Neutrophilia [Recovering/Resolving]
  - Eosinophilia [Recovering/Resolving]
  - Rash maculo-papular [Recovering/Resolving]
  - Haemodynamic instability [Unknown]

NARRATIVE: CASE EVENT DATE: 20220131
